FAERS Safety Report 24186602 (Version 3)
Quarter: 2024Q3

REPORT INFORMATION
  Report Type: Spontaneous
  Country: FI (occurrence: FI)
  Receive Date: 20240808
  Receipt Date: 20240913
  Transmission Date: 20241017
  Serious: Yes (Other)
  Sender: TEVA
  Company Number: FI-TEVA-VS-3228919

PATIENT
  Age: 36 Year
  Sex: Female

DRUGS (7)
  1. AJOVY [Suspect]
     Active Substance: FREMANEZUMAB-VFRM
     Indication: Migraine
     Dosage: FIRST INJECTION
     Route: 065
     Dates: start: 20240429
  2. AJOVY [Suspect]
     Active Substance: FREMANEZUMAB-VFRM
     Indication: Migraine
     Dosage: SECOND INJECTION
     Route: 065
     Dates: start: 20240529
  3. AJOVY [Suspect]
     Active Substance: FREMANEZUMAB-VFRM
     Indication: Migraine
     Dosage: FOURTH INJECTION
     Route: 065
     Dates: start: 20240727
  4. AJOVY [Suspect]
     Active Substance: FREMANEZUMAB-VFRM
     Indication: Migraine
     Dosage: THIRD INJECTION
     Route: 065
     Dates: start: 20240625
  5. SERETIDE [Concomitant]
     Active Substance: FLUTICASONE PROPIONATE\SALMETEROL XINAFOATE
     Indication: Product used for unknown indication
     Dosage: 50/500 1X2,
     Route: 065
  6. LEVOTHYROXINE [Concomitant]
     Active Substance: LEVOTHYROXINE\LEVOTHYROXINE SODIUM
     Indication: Product used for unknown indication
     Route: 065
  7. EPIPEN [Concomitant]
     Active Substance: EPINEPHRINE
     Indication: Product used for unknown indication
     Route: 065

REACTIONS (44)
  - Arrhythmia [Unknown]
  - Hemiplegia [Unknown]
  - Chest pain [Unknown]
  - Erythema [Recovering/Resolving]
  - Dyspnoea [Recovering/Resolving]
  - Asthenia [Recovering/Resolving]
  - Pharyngeal erythema [Recovered/Resolved]
  - Oropharyngeal pain [Not Recovered/Not Resolved]
  - Paraesthesia [Unknown]
  - Migraine [Unknown]
  - Lymphadenopathy [Unknown]
  - Oral mucosal blistering [Recovered/Resolved]
  - Dizziness [Unknown]
  - Rash [Unknown]
  - Aphonia [Unknown]
  - Throat tightness [Unknown]
  - Pain [Unknown]
  - Hypoaesthesia [Unknown]
  - Nausea [Not Recovered/Not Resolved]
  - Abdominal pain [Unknown]
  - Bradyphrenia [Unknown]
  - Head discomfort [Unknown]
  - Illness [Unknown]
  - Chest crushing [Unknown]
  - Cold sweat [Unknown]
  - Dysarthria [Unknown]
  - Eating disorder [Unknown]
  - Blood pressure increased [Unknown]
  - Supraventricular tachycardia [Unknown]
  - Altered state of consciousness [Unknown]
  - Throat irritation [Recovering/Resolving]
  - Cough [Recovering/Resolving]
  - Dyspnoea [Recovering/Resolving]
  - Headache [Not Recovered/Not Resolved]
  - Loss of consciousness [Unknown]
  - Palpitations [Not Recovered/Not Resolved]
  - Malaise [Not Recovered/Not Resolved]
  - Dizziness [Not Recovered/Not Resolved]
  - Pharyngeal swelling [Recovering/Resolving]
  - Pain of skin [Unknown]
  - Electrocardiogram ST segment depression [Unknown]
  - Pharyngitis [Unknown]
  - Strawberry tongue [Unknown]
  - Inappropriate schedule of product administration [Unknown]

NARRATIVE: CASE EVENT DATE: 20240101
